FAERS Safety Report 7658076-4 (Version None)
Quarter: 2011Q3

REPORT INFORMATION
  Report Type: 
  Country: None (occurrence: None)
  Receive Date: 20110805
  Receipt Date: 20110802
  Transmission Date: 20111222
  Serious: Yes (Other)
  Sender: FDA-Public Use
  Company Number: US-BAYER-2011-068402

PATIENT
  Age: 52 Year
  Sex: Female

DRUGS (1)
  1. YAZ [Suspect]
     Dosage: UNK
     Dates: start: 20090711, end: 20090829

REACTIONS (3)
  - THROMBOSIS [None]
  - INJURY [None]
  - DEEP VEIN THROMBOSIS [None]
